FAERS Safety Report 17605788 (Version 1)
Quarter: 2020Q1

REPORT INFORMATION
  Report Type: Spontaneous
  Country: US (occurrence: US)
  Receive Date: 20200330
  Receipt Date: 20200330
  Transmission Date: 20200409
  Serious: No
  Sender: FDA-Public Use
  Company Number: None

PATIENT
  Age: 68 Year
  Sex: Male
  Weight: 65 kg

DRUGS (1)
  1. POMALIDOMIDE (POMALIDOMIDE 4MG CAP, ORAL) [Suspect]
     Active Substance: POMALIDOMIDE
     Indication: PLASMA CELL MYELOMA
     Route: 048
     Dates: start: 20180525, end: 20180611

REACTIONS (6)
  - Tachycardia [None]
  - Hypotension [None]
  - Pyrexia [None]
  - Diarrhoea [None]
  - Hospice care [None]
  - Anaemia [None]

NARRATIVE: CASE EVENT DATE: 20180525
